FAERS Safety Report 9008873 (Version 1)
Quarter: 2013Q1

REPORT INFORMATION
  Report Type: Spontaneous
  Country: FR (occurrence: FR)
  Receive Date: 20130111
  Receipt Date: 20130111
  Transmission Date: 20140127
  Serious: Yes (Other)
  Sender: FDA-Public Use
  Company Number: FR-ABBOTT-13P-056-1031811-00

PATIENT
  Age: 23 None
  Sex: Female

DRUGS (2)
  1. HUMIRA [Suspect]
     Indication: COLITIS ULCERATIVE
     Dosage: 160MG AT LOADED DOSE, 80MG AT J14 AND THEN 40MG EVERY 2 WEEKS
     Dates: start: 201209, end: 20121024
  2. REMICADE [Suspect]
     Indication: COLITIS ULCERATIVE
     Dates: end: 20120330

REACTIONS (3)
  - Systemic lupus erythematosus [Recovering/Resolving]
  - Myalgia [Unknown]
  - Arthralgia [Unknown]
